FAERS Safety Report 8402361-5 (Version None)
Quarter: 2012Q2

REPORT INFORMATION
  Report Type: 
  Country: None (occurrence: None)
  Receive Date: 20120529
  Receipt Date: 20091108
  Transmission Date: 20120825
  Serious: Yes (Death)
  Sender: FDA-Public Use
  Company Number: 007912

PATIENT
  Age: 73 Year
  Sex: Male

DRUGS (18)
  1. UNASYN [Suspect]
     Indication: PNEUMONITIS
     Dosage: 0.75 MG, BID; INTRAVENOUS
     Route: 042
     Dates: start: 20090912, end: 20090920
  2. DEPAS (ETIZOLAM) [Concomitant]
  3. CLONAZEPAM [Concomitant]
  4. LIPITOR [Concomitant]
  5. CONIEL (BENIDIPINE HYDROCHLORIDE) TABLET [Concomitant]
  6. FAMOTIDINE [Concomitant]
  7. ASPIRIN [Suspect]
     Indication: CEREBRAL INFARCTION
     Dosage: 100 MG, DAILY DOSE, ORAL
     Route: 048
     Dates: end: 20090917
  8. VANCOMYCIN HYDROCHLORIDE [Suspect]
     Indication: STAPHYLOCOCCAL INFECTION
     Dosage: 0.5 G, BID; INTRAVENOUS
     Route: 042
     Dates: start: 20090925, end: 20090928
  9. VANCOMYCIN HYDROCHLORIDE [Suspect]
     Indication: STAPHYLOCOCCAL INFECTION
     Dosage: 0.5 G, BID; INTRAVENOUS
     Route: 042
     Dates: start: 20090921, end: 20090923
  10. PLETAL [Suspect]
     Indication: CEREBRAL INFARCTION
     Dosage: 100 MG, BID, ORAL
     Route: 048
     Dates: end: 20090926
  11. MAGNESIUM OXIDE (MAGNESIUM OXIDE) [Concomitant]
  12. SIGMART (NICORANDIL) TABLET [Concomitant]
  13. DEPAKENE-R JPN (VALPROATE SODIUM) [Concomitant]
  14. SEROQUEL [Concomitant]
  15. ANPLAG (SARPOGRELATE HYDROCHLORIDE) [Suspect]
     Indication: ARTERIAL OCCLUSIVE DISEASE
     Dosage: 100 MG, TID; ORAL
     Route: 048
     Dates: end: 20090926
  16. PROMAC (POLAPREZINC) TABLET [Concomitant]
  17. PACETCOOL (CEFOTIAM HYDROCHLORIDE) [Concomitant]
  18. LOXONIN (LOXOPROFEN SODIUM) [Concomitant]

REACTIONS (6)
  - PNEUMONIA [None]
  - HAEMATOCHEZIA [None]
  - RESPIRATORY FAILURE [None]
  - STAPHYLOCOCCAL INFECTION [None]
  - HAEMORRHAGIC DIATHESIS [None]
  - HAEMOPTYSIS [None]
